FAERS Safety Report 5335874-3 (Version None)
Quarter: 2007Q2

REPORT INFORMATION
  Report Type: 
  Country: None (occurrence: None)
  Receive Date: 20070228
  Receipt Date: 20061208
  Transmission Date: 20071010
  Serious: No
  Sender: FDA-Public Use
  Company Number: S06-USA-05190-01

PATIENT
  Age: 40 Year
  Sex: Female

DRUGS (1)
  1. CAMPRAL [Suspect]
     Indication: DRUG USE FOR UNKNOWN INDICATION
     Dates: start: 20061001, end: 20060101

REACTIONS (1)
  - HYPERSENSITIVITY [None]
